FAERS Safety Report 8743907 (Version 3)
Quarter: 2013Q2

REPORT INFORMATION
  Report Type: Spontaneous
  Country: US (occurrence: None)
  Receive Date: 20120803
  Receipt Date: 20130412
  Transmission Date: 20140414
  Serious: Yes (Other)
  Sender: FDA-Public Use
  Company Number: 2012032957

PATIENT
  Age: 39 Year
  Sex: Female
  Weight: 46.72 kg

DRUGS (2)
  1. HIZENTRA [Suspect]
     Indication: IMMUNODEFICIENCY COMMON VARIABLE
     Dosage: ??-JUL-2010 TO ??-SEP-2011
     Route: 058
  2. AUGMENTIN ^125^ [Concomitant]

REACTIONS (1)
  - THROMBOCYTOPENIA [None]
